FAERS Safety Report 25063750 (Version 1)
Quarter: 2025Q1

REPORT INFORMATION
  Report Type: Report from Study
  Country: US (occurrence: US)
  Receive Date: 20250311
  Receipt Date: 20250311
  Transmission Date: 20250408
  Serious: Yes (Other)
  Sender: TAKEDA
  Company Number: US-TAKEDA-2025TUS023019

PATIENT
  Sex: Female

DRUGS (1)
  1. FRUQUINTINIB [Suspect]
     Active Substance: FRUQUINTINIB
     Indication: Colon cancer

REACTIONS (8)
  - Neuropathy peripheral [Unknown]
  - Multiple allergies [Unknown]
  - Flatulence [Unknown]
  - Skin ulcer [Unknown]
  - Abdominal pain upper [Unknown]
  - Middle ear effusion [Unknown]
  - Dizziness [Unknown]
  - Oral pain [Unknown]
